FAERS Safety Report 16906184 (Version 1)
Quarter: 2019Q4

REPORT INFORMATION
  Report Type: Spontaneous
  Country: US (occurrence: US)
  Receive Date: 20191011
  Receipt Date: 20191011
  Transmission Date: 20200122
  Serious: Yes (Life-Threatening, Hospitalization, Disabling, Other)
  Sender: FDA-Public Use
  Company Number: US-JNJFOC-20191002241

PATIENT
  Age: 26 Year
  Sex: Male

DRUGS (2)
  1. DURAGESIC [Suspect]
     Active Substance: FENTANYL
     Dosage: PATCH
     Route: 060
  2. DURAGESIC [Suspect]
     Active Substance: FENTANYL
     Indication: PRODUCT USED FOR UNKNOWN INDICATION
     Dosage: PATCH, FENTANYL: 100UG
     Route: 065

REACTIONS (6)
  - Off label use [Unknown]
  - Quadriparesis [Recovering/Resolving]
  - Respiratory distress [Recovering/Resolving]
  - Incorrect route of product administration [Unknown]
  - Drug abuse [Recovering/Resolving]
  - Myelopathy [Recovering/Resolving]
